FAERS Safety Report 5929569-2 (Version None)
Quarter: 2008Q4

REPORT INFORMATION
  Report Type: 
  Country: None (occurrence: None)
  Receive Date: 20081024
  Receipt Date: 20081014
  Transmission Date: 20090506
  Serious: Yes (Disabling)
  Sender: FDA-Public Use
  Company Number: US-MERCK-0808USA05158

PATIENT
  Age: 84 Year
  Sex: Male

DRUGS (5)
  1. JANUMET [Concomitant]
     Indication: DIABETES MELLITUS
     Route: 048
     Dates: start: 20080101
  2. COSOPT [Suspect]
     Indication: GLAUCOMA
     Route: 047
     Dates: start: 19990128, end: 20030601
  3. COSOPT [Suspect]
     Route: 047
     Dates: start: 20030601
  4. OMEPRAZOLE [Concomitant]
     Route: 065
  5. [THERAPY UNSPECIFIED] [Concomitant]
     Route: 065

REACTIONS (3)
  - DYSPHONIA [None]
  - EYE INFECTION [None]
  - GLAUCOMA [None]
